FAERS Safety Report 6921304-4 (Version None)
Quarter: 2010Q3

REPORT INFORMATION
  Report Type: 
  Country: None (occurrence: None)
  Receive Date: 20100812
  Receipt Date: 20100806
  Transmission Date: 20110219
  Serious: Yes (Hospitalization)
  Sender: FDA-Public Use
  Company Number: B0668890A

PATIENT
  Sex: Female

DRUGS (7)
  1. ABACAVIR SULFATE AND LAMIVUDINE [Suspect]
     Indication: HIV INFECTION
     Route: 048
     Dates: start: 20100703
  2. ISENTRESS [Suspect]
     Indication: HIV INFECTION
     Route: 048
     Dates: end: 20100702
  3. INTELENCE [Suspect]
     Indication: HIV INFECTION
     Route: 048
     Dates: end: 20100702
  4. COAPROVEL [Suspect]
     Route: 048
     Dates: end: 20100702
  5. PREZISTA [Suspect]
     Indication: HIV INFECTION
     Route: 048
     Dates: start: 20100703
  6. NORVIR [Suspect]
     Indication: HIV INFECTION
     Route: 048
     Dates: start: 20100703
  7. ALDOMET [Suspect]
     Route: 048
     Dates: start: 20100703

REACTIONS (4)
  - ABORTION SPONTANEOUS [None]
  - DRUG EXPOSURE DURING PREGNANCY [None]
  - UTERINE HAEMATOMA [None]
  - VAGINAL HAEMORRHAGE [None]
